FAERS Safety Report 21848881 (Version 10)
Quarter: 2025Q1

REPORT INFORMATION
  Report Type: Report from Study
  Country: JP (occurrence: JP)
  Receive Date: 20230111
  Receipt Date: 20250329
  Transmission Date: 20250409
  Serious: Yes (Hospitalization, Other)
  Sender: ABBVIE
  Company Number: JP-TAKEDA-2022TJP074751

PATIENT
  Age: 57 Year
  Sex: Male

DRUGS (16)
  1. LEUPROLIDE ACETATE [Suspect]
     Active Substance: LEUPROLIDE ACETATE
     Indication: Bulbospinal muscular atrophy congenital
     Dosage: 11.25 MILLIGRAM, EVERY 3 MONTHS 1ST DOSE
     Route: 058
     Dates: start: 20171206, end: 20230412
  2. LEUPROLIDE ACETATE [Suspect]
     Active Substance: LEUPROLIDE ACETATE
     Dosage: 11.25 MILLIGRAM, EVERY 3 MONTHS 2ND DOSE
     Route: 058
     Dates: start: 20180307, end: 20180307
  3. LEUPROLIDE ACETATE [Suspect]
     Active Substance: LEUPROLIDE ACETATE
     Dosage: 11.25 MILLIGRAM, EVERY 3 MONTHS 3RD DOSE
     Route: 058
     Dates: start: 20180530, end: 20180530
  4. LEUPROLIDE ACETATE [Suspect]
     Active Substance: LEUPROLIDE ACETATE
     Dosage: 11.25 MILLIGRAM, EVERY 3 MONTHS 4TH DOSE
     Route: 058
     Dates: start: 20180822, end: 20180822
  5. LEUPROLIDE ACETATE [Suspect]
     Active Substance: LEUPROLIDE ACETATE
     Dosage: 11.25 MILLIGRAM, EVERY 3 MONTHS 5TH DOSE
     Route: 058
     Dates: start: 20181114, end: 20181114
  6. LEUPROLIDE ACETATE [Suspect]
     Active Substance: LEUPROLIDE ACETATE
     Dosage: 11.25 MILLIGRAM, EVERY 3 MONTHS 6TH DOSE
     Route: 058
     Dates: start: 20190206, end: 20190206
  7. LEUPROLIDE ACETATE [Suspect]
     Active Substance: LEUPROLIDE ACETATE
     Dosage: 11.25 MILLIGRAM, EVERY 3 MONTHS?7TH DOSE
     Route: 058
     Dates: start: 20190508, end: 20190508
  8. LEUPROLIDE ACETATE [Suspect]
     Active Substance: LEUPROLIDE ACETATE
     Dosage: 11.25 MILLIGRAM, EVERY 3 MONTHS 8TH DOSE
     Route: 058
     Dates: start: 20190731, end: 20190731
  9. LEUPROLIDE ACETATE [Suspect]
     Active Substance: LEUPROLIDE ACETATE
     Dosage: 11.25 MILLIGRAM, EVERY 3 MONTHS ? 9TH DOSE
     Route: 058
     Dates: start: 20191023, end: 20191023
  10. LEUPROLIDE ACETATE [Suspect]
     Active Substance: LEUPROLIDE ACETATE
     Dosage: 11.25 MILLIGRAM, EVERY 3 MONTHS ?10TH DOSE
     Route: 058
     Dates: start: 20200123, end: 20200123
  11. LEUPROLIDE ACETATE [Suspect]
     Active Substance: LEUPROLIDE ACETATE
     Dosage: 11.25 MILLIGRAM, EVERY 3 MONTHS 11TH DOSE
     Route: 058
     Dates: start: 20200415, end: 20200415
  12. LEUPROLIDE ACETATE [Suspect]
     Active Substance: LEUPROLIDE ACETATE
     Dosage: 11.25 MILLIGRAM, EVERY 3 MONTHS 12TH DOSE
     Route: 058
     Dates: start: 20200708, end: 20200708
  13. LEUPROLIDE ACETATE [Suspect]
     Active Substance: LEUPROLIDE ACETATE
     Dosage: 11.25 MILLIGRAM, EVERY 3 MONTHS 13TH DOSE
     Route: 058
     Dates: start: 20200930, end: 20200930
  14. CLOBAZAM [Concomitant]
     Active Substance: CLOBAZAM
     Indication: Epilepsy
     Route: 065
     Dates: end: 20230726
  15. VALPROATE SODIUM [Concomitant]
     Active Substance: VALPROATE SODIUM
     Indication: Epilepsy
     Route: 065
     Dates: end: 20230726
  16. PHENYTOIN SODIUM [Concomitant]
     Active Substance: PHENYTOIN SODIUM
     Indication: Epilepsy
     Route: 065
     Dates: end: 20230607

REACTIONS (6)
  - Hypokalaemia [Recovered/Resolved]
  - Diabetes mellitus [Not Recovered/Not Resolved]
  - Lipid metabolism disorder [Recovered/Resolved]
  - Hypertension [Not Recovered/Not Resolved]
  - Dyslipidaemia [Recovered/Resolved]
  - Pneumonia aspiration [Recovered/Resolved]

NARRATIVE: CASE EVENT DATE: 20180822
